FAERS Safety Report 23889013 (Version 1)
Quarter: 2024Q2

REPORT INFORMATION
  Report Type: Spontaneous
  Country: GB (occurrence: GB)
  Receive Date: 20240523
  Receipt Date: 20240523
  Transmission Date: 20240716
  Serious: Yes (Disabling, Other)
  Sender: FDA-Public Use
  Company Number: None

PATIENT
  Sex: Female

DRUGS (2)
  1. LOSARTAN [Suspect]
     Active Substance: LOSARTAN
     Dosage: LOSARTAN POTASSIUM
     Route: 065
  2. RAWEL XL [Concomitant]

REACTIONS (7)
  - Cough [Unknown]
  - Wheezing [Unknown]
  - Arthralgia [Unknown]
  - Muscle spasms [Unknown]
  - Weight bearing difficulty [Unknown]
  - Myalgia [Unknown]
  - Headache [Unknown]
